FAERS Safety Report 7115361-2 (Version None)
Quarter: 2010Q4

REPORT INFORMATION
  Report Type: 
  Country: None (occurrence: None)
  Receive Date: 20101122
  Receipt Date: 20101112
  Transmission Date: 20110411
  Serious: Yes (Other)
  Sender: FDA-Public Use
  Company Number: GB-ASTRAZENECA-2010SE54180

PATIENT
  Age: 69 Year
  Sex: Male

DRUGS (13)
  1. ATENOLOL [Suspect]
     Route: 065
  2. AMIAS [Suspect]
     Route: 048
  3. ISOSORBIDE MONONITRATE [Suspect]
     Route: 048
  4. FOLIC ACID [Suspect]
     Route: 065
  5. FLURBIPROFEN [Suspect]
     Route: 065
  6. LANSOPRAZOLE [Suspect]
     Route: 065
  7. METHOTREXATE [Suspect]
     Route: 065
  8. NICORANDIL [Suspect]
     Route: 065
  9. PRAVASTATIN [Suspect]
     Route: 065
  10. SIMVASTATIN [Suspect]
     Route: 065
  11. ASPIRIN [Concomitant]
  12. CALCIPOTRIOL [Concomitant]
  13. GUAR HYDROXYPROPYL TRIMONIUM [Concomitant]

REACTIONS (1)
  - ABNORMAL DREAMS [None]
